FAERS Safety Report 16134765 (Version 1)
Quarter: 2019Q1

REPORT INFORMATION
  Report Type: Spontaneous
  Country: IQ (occurrence: IQ)
  Receive Date: 20190329
  Receipt Date: 20190329
  Transmission Date: 20190418
  Serious: Yes (Life-Threatening, Other)
  Sender: FDA-Public Use
  Company Number: IQ-HIKMA PHARMACEUTICALS USA INC.-IQ-H14001-19-01100

PATIENT
  Age: 5 Year
  Sex: Female
  Weight: 17 kg

DRUGS (2)
  1. AMOCLAN [Suspect]
     Active Substance: AMOXICILLIN\CLAVULANIC ACID
     Indication: OTITIS MEDIA
     Route: 048
  2. BROMHEXINE [Concomitant]
     Active Substance: BROMHEXINE
     Indication: PRODUCT USED FOR UNKNOWN INDICATION
     Route: 065

REACTIONS (7)
  - Urticaria [Recovering/Resolving]
  - Face oedema [Recovering/Resolving]
  - Rash [Recovering/Resolving]
  - Dyspnoea [Recovering/Resolving]
  - Drug hypersensitivity [Recovered/Resolved]
  - Pyrexia [Recovering/Resolving]
  - Pruritus [Recovering/Resolving]
